FAERS Safety Report 11500059 (Version 1)
Quarter: 2015Q3

REPORT INFORMATION
  Report Type: Spontaneous
  Country: US (occurrence: None)
  Receive Date: 20150910
  Receipt Date: 20150910
  Transmission Date: 20151125
  Serious: Yes (Other)
  Sender: FDA-Public Use
  Company Number: 2015US0502

PATIENT
  Age: 53 Year
  Sex: Female
  Weight: 102.51 kg

DRUGS (9)
  1. FLUOXETINE [Concomitant]
     Active Substance: FLUOXETINE\FLUOXETINE HYDROCHLORIDE
  2. BRIO [Concomitant]
  3. TOPAMAX (TOPIRAMATE) (TOPIRAMATE) [Concomitant]
  4. ADVAIR HFA [Concomitant]
     Active Substance: FLUTICASONE PROPIONATE\SALMETEROL XINAFOATE
  5. VAROLIN [Concomitant]
  6. CULTRAZINE [Concomitant]
  7. KINERET [Suspect]
     Active Substance: ANAKINRA
     Indication: PYREXIA
  8. PRECOSET (OXYCOCET) (PARACETAMOL, OXYCODONE HYDROCHLORIDE) [Concomitant]
  9. NASACORT (TRIAMCINOLONE ACETONIDE) (TRIAMCINOLONE ACETONIDE) [Concomitant]

REACTIONS (15)
  - Pruritus [None]
  - Abdominal distension [None]
  - Asthenia [None]
  - Bedridden [None]
  - Serum sickness [None]
  - Dyspnoea [None]
  - Pyrexia [None]
  - Product quality issue [None]
  - Malaise [None]
  - Mental disorder [None]
  - Urticaria [None]
  - Swelling [None]
  - Feeling abnormal [None]
  - Influenza like illness [None]
  - Lupus-like syndrome [None]
